FAERS Safety Report 6838907-8 (Version None)
Quarter: 2010Q3

REPORT INFORMATION
  Report Type: 
  Country: None (occurrence: None)
  Receive Date: 20100713
  Receipt Date: 20070709
  Transmission Date: 20110219
  Serious: No
  Sender: FDA-Public Use
  Company Number: US-PFIZER INC-2007035041

PATIENT
  Sex: Female
  Weight: 63.5 kg

DRUGS (3)
  1. CHANTIX [Suspect]
     Indication: SMOKING CESSATION THERAPY
     Route: 048
     Dates: start: 20070411
  2. BLACK COHOSH [Concomitant]
     Indication: HOT FLUSH
  3. DYAZIDE [Concomitant]
     Indication: MENIERE'S DISEASE

REACTIONS (6)
  - APPETITE DISORDER [None]
  - CONSTIPATION [None]
  - DECREASED APPETITE [None]
  - GOITRE [None]
  - INCREASED APPETITE [None]
  - NAUSEA [None]
